FAERS Safety Report 6878130-4 (Version None)
Quarter: 2010Q2

REPORT INFORMATION
  Report Type: 
  Country: None (occurrence: None)
  Receive Date: 20100616
  Receipt Date: 20100308
  Transmission Date: 20101027
  Serious: No
  Sender: FDA-Public Use
  Company Number: DSA_42739_2010

PATIENT
  Sex: Male

DRUGS (5)
  1. XENAZINE [Suspect]
     Indication: TARDIVE DYSKINESIA
     Dosage: 12.5 MG QD ORAL
     Route: 048
     Dates: start: 20100201, end: 20100201
  2. TARKA [Concomitant]
  3. GABAPENTIN [Concomitant]
  4. HYDRALAZINE HCL [Concomitant]
  5. LAMOTRIGINE [Concomitant]

REACTIONS (2)
  - DRUG INEFFECTIVE FOR UNAPPROVED INDICATION [None]
  - TARDIVE DYSKINESIA [None]
